FAERS Safety Report 21987493 (Version 1)
Quarter: 2023Q1

REPORT INFORMATION
  Report Type: Spontaneous
  Country: BR (occurrence: BR)
  Receive Date: 20230214
  Receipt Date: 20230214
  Transmission Date: 20230418
  Serious: Yes (Death, Hospitalization)
  Sender: FDA-Public Use
  Company Number: BR-JNJFOC-20230219013

PATIENT
  Sex: Female

DRUGS (1)
  1. STELARA [Suspect]
     Active Substance: USTEKINUMAB
     Indication: Crohn^s disease
     Route: 058

REACTIONS (5)
  - Hypovolaemic shock [Fatal]
  - Gastrointestinal haemorrhage [Fatal]
  - Crohn^s disease [Fatal]
  - Hospitalisation [Unknown]
  - Decreased immune responsiveness [Unknown]
